FAERS Safety Report 19466165 (Version 3)
Quarter: 2021Q3

REPORT INFORMATION
  Report Type: Spontaneous
  Country: DE (occurrence: DE)
  Receive Date: 20210624
  Receipt Date: 20210722
  Transmission Date: 20211014
  Serious: Yes (Other)
  Sender: FDA-Public Use
  Company Number: DE-BAXTER-2021BAX017797

PATIENT
  Age: 65 Year
  Sex: Female
  Weight: 87 kg

DRUGS (3)
  1. DOXIL [Suspect]
     Active Substance: DOXORUBICIN HYDROCHLORIDE
     Indication: SARCOMA METASTATIC
     Route: 042
     Dates: start: 201903, end: 201907
  2. TAMOXIFEN [Concomitant]
     Active Substance: TAMOXIFEN
     Indication: BREAST CANCER METASTATIC
     Route: 065
     Dates: start: 201809
  3. BEVACIZUMAB. [Suspect]
     Active Substance: BEVACIZUMAB
     Indication: SARCOMA METASTATIC
     Route: 042
     Dates: start: 201903, end: 201907

REACTIONS (2)
  - Haematotoxicity [Recovering/Resolving]
  - Mucosal inflammation [Recovering/Resolving]
